FAERS Safety Report 4715475-8 (Version None)
Quarter: 2005Q3

REPORT INFORMATION
  Report Type: 
  Country: None (occurrence: None)
  Receive Date: 20050713
  Receipt Date: 20050701
  Transmission Date: 20060218
  Serious: Yes (Hospitalization)
  Sender: FDA-Public Use
  Company Number: KII-2005-0017348

PATIENT
  Age: 42 Year
  Sex: Male

DRUGS (4)
  1. MORPHINE SULFATE [Suspect]
     Indication: PAIN
     Dosage: SEE TEXT, ORAL
     Route: 048
  2. HYDROCODONE BITARTRATE + ACETAMINOPHEN [Suspect]
     Dosage: ORAL
     Route: 048
  3. AMPHETAMINE SULFATE TAB [Suspect]
  4. TRICYCLIC ANTIDEPRESSANT () [Suspect]

REACTIONS (9)
  - AGGRESSION [None]
  - AGITATION [None]
  - DRUG SCREEN POSITIVE [None]
  - HYPERTENSION [None]
  - SCREAMING [None]
  - SINUS TACHYCARDIA [None]
  - TACHYPNOEA [None]
  - THERAPY NON-RESPONDER [None]
  - UNRESPONSIVE TO VERBAL STIMULI [None]
